FAERS Safety Report 5511560-1 (Version None)
Quarter: 2007Q4

REPORT INFORMATION
  Report Type: 
  Country: None (occurrence: None)
  Receive Date: 20071109
  Receipt Date: 20071101
  Transmission Date: 20080405
  Serious: Yes (Hospitalization)
  Sender: FDA-Public Use
  Company Number: IT-GENENTECH-250888

PATIENT
  Age: 60 Year
  Sex: Female

DRUGS (1)
  1. RITUXAN [Suspect]
     Indication: CRYOGLOBULINAEMIA
     Dosage: 375 MG/M2, 1/WEEK

REACTIONS (4)
  - MULTI-ORGAN FAILURE [None]
  - PNEUMONIA [None]
  - RENAL IMPAIRMENT [None]
  - SEPTIC SHOCK [None]
